FAERS Safety Report 24887770 (Version 1)
Quarter: 2025Q1

REPORT INFORMATION
  Report Type: Spontaneous
  Country: JP (occurrence: JP)
  Receive Date: 20250127
  Receipt Date: 20250127
  Transmission Date: 20250408
  Serious: Yes (Death, Hospitalization)
  Sender: RECORDATI
  Company Number: JP-RECORDATI RARE DISEASE INC.-2025000308

PATIENT

DRUGS (1)
  1. ISTURISA [Suspect]
     Active Substance: OSILODROSTAT PHOSPHATE
     Indication: Cushing^s syndrome
     Route: 048
     Dates: start: 20241209, end: 20250110

REACTIONS (2)
  - Cytomegalovirus infection [Fatal]
  - Condition aggravated [Fatal]

NARRATIVE: CASE EVENT DATE: 20250110
